FAERS Safety Report 18037025 (Version 1)
Quarter: 2020Q3

REPORT INFORMATION
  Report Type: Spontaneous
  Country: FR (occurrence: FR)
  Receive Date: 20200717
  Receipt Date: 20200717
  Transmission Date: 20201103
  Serious: Yes (Other)
  Sender: FDA-Public Use
  Company Number: FR-FRESENIUS KABI-FK202006980

PATIENT
  Age: 66 Year
  Sex: Female
  Weight: 57 kg

DRUGS (7)
  1. PREDNISOLONE. [Concomitant]
     Active Substance: PREDNISOLONE
     Indication: VOMITING
     Dosage: 40MG AT DAY 2 AND DAY 3 AFTER CHEMOTHERAPY
     Route: 048
     Dates: start: 20191018, end: 20200402
  2. APREPITANT. [Concomitant]
     Active Substance: APREPITANT
     Indication: VOMITING
     Dosage: 125 MG AT DAY 1 AND 80MG AT DAY 2 AND 3 AFTER CHEMOTHERAPY
     Route: 048
     Dates: start: 20191018, end: 20200402
  3. METOCLOPRAMIDE. [Concomitant]
     Active Substance: METOCLOPRAMIDE
     Indication: VOMITING
     Dosage: 10MG IF NAUSEA, UP TO 30MG PER DAY
     Route: 048
     Dates: start: 20191018, end: 20200402
  4. SODIUM BICARBONATE. [Concomitant]
     Active Substance: SODIUM BICARBONATE
     Indication: STOMATITIS
     Dosage: MOUTHWASH AFTER MEALS
     Route: 002
     Dates: start: 20191018, end: 20200402
  5. LOPERAMIDE [Concomitant]
     Active Substance: LOPERAMIDE
     Indication: DIARRHOEA
     Dosage: 2MG IF DIARRHEA, UP TO 8 PER DAY
     Route: 048
     Dates: start: 20191018, end: 20200402
  6. FLUOROURACIL. [Suspect]
     Active Substance: FLUOROURACIL
     Indication: COLORECTAL ADENOCARCINOMA
     Dosage: 48 HOUR CASSETTE
     Route: 042
     Dates: start: 20191018, end: 20200331
  7. OXALIPLATIN (MANUFACTURER UNKNOWN) [Suspect]
     Active Substance: OXALIPLATIN
     Indication: COLORECTAL ADENOCARCINOMA
     Route: 042
     Dates: start: 20191018, end: 20200204

REACTIONS (3)
  - Agranulocytosis [Recovered/Resolved]
  - Neuropathy peripheral [Unknown]
  - Interstitial lung disease [Recovered/Resolved]

NARRATIVE: CASE EVENT DATE: 20200113
